FAERS Safety Report 7946770-7 (Version None)
Quarter: 2011Q4

REPORT INFORMATION
  Report Type: 
  Country: None (occurrence: None)
  Receive Date: 20111129
  Receipt Date: 20111125
  Transmission Date: 20120403
  Serious: Yes (Life-Threatening, Hospitalization)
  Sender: FDA-Public Use
  Company Number: KR-ABBOTT-11P-090-0845596-00

PATIENT
  Age: 67 Year
  Sex: Female

DRUGS (87)
  1. RALTEGRAVIR [Concomitant]
     Dosage: 800 MG DAILY
     Dates: start: 20110819, end: 20111007
  2. ABACAVIR [Concomitant]
     Indication: ANTIRETROVIRAL THERAPY
     Dosage: 600 MG DAILY
     Dates: start: 20110328, end: 20110728
  3. MACPERAN [Concomitant]
     Route: 048
     Dates: start: 20110616, end: 20110618
  4. DEAHAN POTASSUIM CHOLORIDE [Concomitant]
     Dosage: 2 VIALS DAILY, 40INJ 3G/20ML
     Route: 042
     Dates: start: 20110905, end: 20110905
  5. PHENIRAMINE [Concomitant]
     Dosage: 4 MG DAILY, 4MG/2ML/ 2ML
     Route: 042
     Dates: start: 20110915, end: 20110916
  6. CYCLOPHOSPHAMIDE [Concomitant]
     Indication: B-CELL LYMPHOMA
     Dosage: 500MG INJ 500MG
     Route: 042
     Dates: start: 20110525, end: 20110525
  7. RABEPRAZOLE SODIUM [Concomitant]
     Indication: GASTRIC ULCER
     Dosage: 10 MG DAILY
     Route: 048
     Dates: start: 20110525, end: 20110525
  8. MEGESTROL ACETATE [Concomitant]
     Indication: DECREASED APPETITE
     Dosage: 1 PACK
     Route: 048
     Dates: start: 20110529, end: 20110529
  9. SEPTRA [Concomitant]
  10. K-CONTIN CONTINUS [Concomitant]
     Dosage: 1800 MG DAILY
     Route: 048
     Dates: start: 20110902, end: 20110902
  11. HANIL FLASYNIL [Concomitant]
     Indication: CLOSTRIDIUM DIFFICILE COLITIS
     Dosage: 1500 MG DAILY
     Route: 048
     Dates: start: 20110808
  12. PHENIRAMINE [Concomitant]
     Route: 042
     Dates: start: 20110525, end: 20110525
  13. PHENIRAMINE [Concomitant]
     Indication: CHEMOTHERAPY
  14. CJ SODIUM CHLORIDE [Concomitant]
     Dosage: 2 VIALS, 2.34G/20ML
     Route: 042
     Dates: start: 20110822, end: 20110830
  15. PLATELETS, CONCENTRATED [Concomitant]
     Indication: PLATELET DISORDER
     Dosage: SEVEN PACK
     Route: 042
     Dates: start: 20110915, end: 20110916
  16. DEAHAN POTASSUIM CHOLORIDE [Concomitant]
     Dosage: 40INJ 3G/20ML
     Route: 042
     Dates: start: 20110804, end: 20110805
  17. PHENIRAMINE [Concomitant]
     Dosage: 4MG/2ML 2ML
     Route: 042
     Dates: start: 20110617, end: 20110617
  18. THIAMINE HCL [Concomitant]
     Indication: VITAMIN SUPPLEMENTATION
     Dosage: 100 MG DAILY
     Route: 042
     Dates: start: 20110617, end: 20110624
  19. K-CONTIN CONTINUS [Concomitant]
     Indication: MINERAL SUPPLEMENTATION
     Dosage: 1800 MG DAILY
     Route: 048
     Dates: start: 20110727, end: 20110802
  20. K-CONTIN CONTINUS [Concomitant]
     Route: 048
     Dates: start: 20110811
  21. RALTEGRAVIR [Concomitant]
     Dates: start: 20111027
  22. DIFLUCAN [Concomitant]
     Dosage: 10MG/ML 35ML
     Route: 048
     Dates: start: 20110529, end: 20110616
  23. DIFLUCAN [Concomitant]
     Dosage: 10MG/ML 35ML
     Route: 048
     Dates: start: 20110810
  24. ZITHROMAX [Concomitant]
     Route: 048
     Dates: start: 20110713, end: 20110720
  25. MACPERAN [Concomitant]
     Indication: PROPHYLAXIS OF NAUSEA AND VOMITING
     Dosage: 15 MG DAILY
     Route: 048
     Dates: start: 20110524, end: 20110604
  26. SEPTRA [Concomitant]
     Indication: PNEUMOCYSTIS JIROVECI PNEUMONIA
  27. ALOXI [Concomitant]
     Indication: PROPHYLAXIS OF NAUSEA AND VOMITING
     Dosage: 0.25 MG DAILY
     Route: 042
     Dates: start: 20110525, end: 20110525
  28. VINCRISTINE PHARMACHEMIE [Concomitant]
     Indication: B-CELL LYMPHOMA
     Dosage: 1.5 MG DAILY
     Route: 042
     Dates: start: 20110525, end: 20110525
  29. MVH [Concomitant]
     Route: 042
     Dates: start: 20110630, end: 20110704
  30. DAEWON MEGESTEROL ACETATE SUSPENSION [Concomitant]
     Indication: DECREASED APPETITE
     Dosage: 1 PACK
     Route: 048
     Dates: start: 20110806
  31. SINIL THIAMINE HCL [Concomitant]
     Indication: VITAMIN SUPPLEMENTATION
     Route: 042
     Dates: start: 20110812
  32. TAMIPOOL [Concomitant]
     Dates: start: 20110812
  33. KALETRA [Suspect]
     Dosage: 2 TABS, TWICE A DAY
     Dates: start: 20110713, end: 20110728
  34. LAMIVUDINE (EPIVIR HBV) [Concomitant]
     Indication: ANTIRETROVIRAL THERAPY
     Dosage: 300 MG DAILY
     Dates: start: 20110328, end: 20111007
  35. DIFLUCAN [Concomitant]
     Indication: ORAL CANDIDIASIS
     Dosage: 100 MG DAILY
     Route: 048
     Dates: start: 20110516, end: 20110616
  36. DEAHAN POTASSUIM CHOLORIDE [Concomitant]
     Dosage: 3 VIALS DAILY, 40 INJ 3G/20ML
     Route: 042
     Dates: start: 20110919, end: 20110920
  37. PHENIRAMINE [Concomitant]
     Dosage: 4MG/2ML 2ML
     Route: 042
     Dates: start: 20110615, end: 20110615
  38. PHENIRAMINE [Concomitant]
     Dosage: 4 MG DAILY, 4MG/2ML/ 2ML
     Route: 042
     Dates: start: 20110919, end: 20110919
  39. CYMEVENE [Concomitant]
     Indication: CYTOMEGALOVIRUS COLITIS
     Dosage: 400 MG DAILY
     Route: 042
     Dates: start: 20110616, end: 20110618
  40. K-CONTIN CONTINUS [Concomitant]
     Route: 048
     Dates: start: 20110803, end: 20110810
  41. JW KCL [Concomitant]
     Indication: MINERAL SUPPLEMENTATION
     Dosage: 3G/20ML, 2 VIALS DAILY
     Dates: start: 20110812
  42. TRIDEL [Concomitant]
     Indication: DIFFUSE LARGE B-CELL LYMPHOMA
  43. DIFLUCAN [Concomitant]
     Dosage: 10MG/ML 35ML
     Route: 048
     Dates: start: 20110720, end: 20110720
  44. PHENIRAMINE [Concomitant]
     Indication: PLATELET TRANSFUSION
     Dosage: 4MG/2ML 2ML
     Route: 042
     Dates: start: 20110609, end: 20110611
  45. SEPTRA [Concomitant]
     Indication: PROPHYLAXIS
     Dosage: 1 TAB DAILY
     Route: 048
     Dates: start: 20110328, end: 20110525
  46. NISORONE [Concomitant]
     Indication: B-CELL LYMPHOMA
     Dosage: 100 MG DAILY
     Route: 048
     Dates: start: 20110525, end: 20110529
  47. SEPTRA [Concomitant]
     Dosage: 1 TAB DAILY
     Route: 048
     Dates: start: 20110713, end: 20110720
  48. TRODOL [Concomitant]
     Indication: DIFFUSE LARGE B-CELL LYMPHOMA
  49. CJ SODIUM CHLORIDE [Concomitant]
     Indication: ELECTROLYTE SUBSTITUTION THERAPY
     Dosage: 2 VIALS, 2.34G/20ML
     Route: 042
     Dates: start: 20110822, end: 20110830
  50. CJ SODIUM CHLORIDE [Concomitant]
     Dosage: 3 VIALS, 2.34G/20ML
     Dates: start: 20110923
  51. MULTIVITAMIN [Concomitant]
     Indication: VITAMIN SUPPLEMENTATION
     Dosage: ONE TAB DAILY
     Route: 048
     Dates: start: 20110830
  52. PACKED RED CELL [Concomitant]
     Indication: HAEMOGLOBIN ABNORMAL
     Dosage: TWO PACK, 400CC
     Route: 042
     Dates: start: 20110915, end: 20110915
  53. PLATELETS, CONCENTRATED [Concomitant]
     Dosage: EIGHT PACK
     Route: 042
     Dates: start: 20110923
  54. FAMOTIDINE [Concomitant]
     Indication: PROPHYLAXIS AGAINST GASTROINTESTINAL ULCER
     Route: 048
     Dates: start: 20110705, end: 20110713
  55. BEARSE [Concomitant]
     Indication: DYSPEPSIA
  56. DEAHAN POTASSUIM CHOLORIDE [Concomitant]
     Indication: PREMEDICATION
     Dosage: 40 INJ 3G/20ML
     Route: 042
     Dates: start: 20110524, end: 20110624
  57. DEAHAN POTASSUIM CHOLORIDE [Concomitant]
     Dosage: 2 VIALS DAILY, 40 INJ 3G/20ML
     Route: 042
     Dates: start: 20110911, end: 20110913
  58. DEAHAN POTASSUIM CHOLORIDE [Concomitant]
     Dosage: 3 VIALS DAILY, 40 INJ 3G/20ML
     Route: 042
     Dates: start: 20110913, end: 20110915
  59. MABTHERA [Concomitant]
     Indication: B-CELL LYMPHOMA
     Dosage: 10MG/ML 50ML
     Route: 042
     Dates: start: 20110525, end: 20110525
  60. EMEND [Concomitant]
     Indication: PROPHYLAXIS OF NAUSEA AND VOMITING
     Dosage: 80 MG DAILY
     Route: 048
     Dates: start: 20110527, end: 20110527
  61. SODIUM BICARBONATE [Concomitant]
     Indication: GASTRIC ULCER
     Dosage: 3 MG DAILY
     Route: 048
     Dates: start: 20110529, end: 20110627
  62. GREENCROSS ALBUMIN [Concomitant]
     Indication: SUPPLEMENTATION THERAPY
     Dosage: 20% 0.2G/ML 100ML
     Route: 042
     Dates: start: 20110604, end: 20110604
  63. FAMOTIDINE [Concomitant]
     Indication: PROPHYLAXIS AGAINST GASTROINTESTINAL ULCER
     Dosage: 20MG(VIAL) DAILY
     Route: 042
     Dates: start: 20110616, end: 20110618
  64. JEIL THIAMINE [Concomitant]
     Indication: VITAMIN SUPPLEMENTATION
     Dosage: 50MG/2ML
     Route: 042
     Dates: start: 20110721, end: 20110724
  65. STOGAR [Concomitant]
     Indication: PROPHYLAXIS AGAINST GASTROINTESTINAL ULCER
     Dosage: 20 MG DAILY
     Route: 048
     Dates: start: 20110809
  66. CJ SODIUM CHLORIDE [Concomitant]
     Dosage: 2 VIALS, 2.34G/ML
     Route: 042
     Dates: start: 20110911, end: 20110913
  67. KALETRA [Suspect]
     Indication: HIV INFECTION
     Dosage: 2 TABS, TWICE A DAY
     Dates: start: 20110518, end: 20110616
  68. KALETRA [Suspect]
     Dosage: 2 TABS, TWICE A DAY
     Route: 048
     Dates: start: 20110819, end: 20111007
  69. RALTEGRAVIR [Concomitant]
     Indication: ANTIRETROVIRAL THERAPY
     Dosage: 600 MG DAILY
     Dates: start: 20110617, end: 20110712
  70. BEARSE [Concomitant]
     Indication: PROPHYLAXIS
     Dosage: 3 TABS DAILY
     Route: 048
     Dates: start: 20110524, end: 20110524
  71. DEAHAN POTASSUIM CHOLORIDE [Concomitant]
     Indication: MINERAL SUPPLEMENTATION
     Dosage: 40INJ 3G/20ML
     Route: 042
     Dates: start: 20110531, end: 20110604
  72. DEAHAN POTASSUIM CHOLORIDE [Concomitant]
     Indication: CHEMOTHERAPY
     Dosage: 40INJ 3G/20ML
     Route: 042
     Dates: start: 20110721, end: 20110724
  73. PHENIRAMINE [Concomitant]
     Indication: PREMEDICATION
     Dosage: 4MG/2ML 2ML
     Route: 042
     Dates: start: 20110530, end: 20110530
  74. K-CONTIN CONTINUS [Concomitant]
     Dosage: 3600 MG DAILY
     Dates: start: 20110905, end: 20110907
  75. SINIL THIAMINE HCL [Concomitant]
     Dosage: 30 MG DAILY
     Dates: start: 20110907
  76. TRODOL [Concomitant]
     Indication: PAIN MANAGEMENT
     Dosage: 150 MG DAILY, 50MG/ML 1 ML
     Route: 042
     Dates: start: 20110815, end: 20110826
  77. TRIDEL [Concomitant]
     Indication: PAIN MANAGEMENT
     Dosage: 150 MG DAILY
     Route: 048
     Dates: start: 20110826, end: 20110829
  78. LAMIVUDINE (EPIVIR HBV) [Concomitant]
     Dosage: 300 MG DAILY
     Dates: start: 20110819
  79. FAMOTIDINE [Concomitant]
     Indication: GASTRIC ULCER
     Dosage: 20 MG DAILY
     Route: 048
     Dates: start: 20110518, end: 20110602
  80. ZITHROMAX [Concomitant]
     Indication: OPPORTUNISTIC INFECTION PROPHYLAXIS
     Dosage: 1000 MG ONCE A WEEK
     Route: 048
     Dates: start: 20110518, end: 20110525
  81. PHENIRAMINE [Concomitant]
     Dosage: 4MG/2ML 2ML
     Route: 042
     Dates: start: 20110613, end: 20110613
  82. CYMEVENE [Concomitant]
     Route: 042
     Dates: start: 20110619, end: 20110703
  83. MVH [Concomitant]
     Indication: VITAMIN SUPPLEMENTATION
     Dosage: 5 ML DAILY
     Route: 042
     Dates: start: 20110617, end: 20110624
  84. TAMIPOOL [Concomitant]
     Indication: VITAMIN SUPPLEMENTATION
     Dosage: 1 VIAL
     Route: 042
     Dates: start: 20110720, end: 20110724
  85. CENTRUM [Concomitant]
     Indication: VITAMIN SUPPLEMENTATION
     Route: 048
     Dates: start: 20110725
  86. ACTONEL [Concomitant]
     Indication: OSTEOPOROSIS PROPHYLAXIS
     Dosage: 35 MG WEEKLY
     Route: 048
     Dates: start: 20110803
  87. CJ CALCIUM GLUCONATE [Concomitant]
     Indication: MINERAL SUPPLEMENTATION
     Dates: start: 20110812

REACTIONS (13)
  - ANAEMIA [None]
  - NEUTROPENIA [None]
  - OSTEOPOROSIS [None]
  - JAUNDICE [None]
  - PNEUMOTHORAX [None]
  - HYPONATRAEMIA [None]
  - HYPERBILIRUBINAEMIA [None]
  - DIARRHOEA [None]
  - PNEUMONIA FUNGAL [None]
  - DEPRESSED MOOD [None]
  - CYTOMEGALOVIRUS COLITIS [None]
  - SHOCK [None]
  - URINARY TRACT INFECTION [None]
